FAERS Safety Report 11592226 (Version 1)
Quarter: 2015Q4

REPORT INFORMATION
  Report Type: Spontaneous
  Country: US (occurrence: None)
  Receive Date: 20151001
  Receipt Date: 20151001
  Transmission Date: 20160304
  Serious: Yes (Death, Hospitalization)
  Sender: FDA-Public Use
  Company Number: 2015HINLIT0801

PATIENT
  Age: 87 Year
  Sex: Female

DRUGS (4)
  1. HYDRALAZINE [Suspect]
     Active Substance: HYDRALAZINE HYDROCHLORIDE
     Indication: PRODUCT USED FOR UNKNOWN INDICATION
  2. ASPIRIN (ASPIRIN) [Concomitant]
     Active Substance: ASPIRIN
  3. CARVEDILOL (CARVEDILOL) [Concomitant]
     Active Substance: CARVEDILOL
  4. LISINOPRIL (LISINOPRIL) [Concomitant]
     Active Substance: LISINOPRIL

REACTIONS (2)
  - Lupus vasculitis [None]
  - Pulmonary renal syndrome [None]
